FAERS Safety Report 18299016 (Version 1)
Quarter: 2020Q3

REPORT INFORMATION
  Report Type: Spontaneous
  Country: FR (occurrence: FR)
  Receive Date: 20200922
  Receipt Date: 20200922
  Transmission Date: 20201103
  Serious: Yes (Death, Hospitalization)
  Sender: FDA-Public Use
  Company Number: FR-ELI_LILLY_AND_COMPANY-FR202009008503

PATIENT
  Age: 62 Year
  Sex: Male

DRUGS (3)
  1. ALIMTA [Suspect]
     Active Substance: PEMETREXED DISODIUM
     Indication: LUNG ADENOCARCINOMA
     Dosage: UNK, UNKNOWN
     Route: 065
  2. CISPLATIN. [Concomitant]
     Active Substance: CISPLATIN
     Indication: LUNG ADENOCARCINOMA
     Dosage: UNK, UNKNOWN
     Route: 065
  3. CARBOPLATIN. [Concomitant]
     Active Substance: CARBOPLATIN
     Indication: LUNG ADENOCARCINOMA
     Dosage: UNK, UNKNOWN
     Route: 065

REACTIONS (7)
  - Off label use [Unknown]
  - Sepsis [Fatal]
  - Diarrhoea [Fatal]
  - Gastrointestinal inflammation [Fatal]
  - Neutropenia [Fatal]
  - Neutropenic colitis [Fatal]
  - Diarrhoea [Recovered/Resolved]
